FAERS Safety Report 9519456 (Version 2)
Quarter: 2013Q3

REPORT INFORMATION
  Report Type: Report from Study
  Country: DE (occurrence: DE)
  Receive Date: 20130912
  Receipt Date: 20130918
  Transmission Date: 20140515
  Serious: Yes (Hospitalization)
  Sender: FDA-Public Use
  Company Number: DE-GLAXOSMITHKLINE-B0922135A

PATIENT
  Age: 55 Year
  Sex: Male

DRUGS (2)
  1. PAZOPANIB [Suspect]
     Indication: RENAL CELL CARCINOMA
     Dates: start: 20130424
  2. SORAFENIB [Suspect]
     Indication: RENAL CELL CARCINOMA

REACTIONS (1)
  - Disease progression [Not Recovered/Not Resolved]
